FAERS Safety Report 5819336-2 (Version None)
Quarter: 2008Q3

REPORT INFORMATION
  Report Type: 
  Country: None (occurrence: None)
  Receive Date: 20080723
  Receipt Date: 20080714
  Transmission Date: 20090109
  Serious: Yes (Death, Other)
  Sender: FDA-Public Use
  Company Number: HQWYE810129JUN05

PATIENT
  Sex: Female

DRUGS (2)
  1. PREMARIN [Suspect]
     Dosage: UNKNOWN
     Dates: start: 19900604, end: 19940401
  2. PROVERA [Suspect]
     Dosage: UNKNOWN
     Dates: start: 19900604, end: 19940401

REACTIONS (3)
  - BREAST CANCER [None]
  - OESTROGEN RECEPTOR ASSAY POSITIVE [None]
  - PROGESTERONE RECEPTOR ASSAY POSITIVE [None]
